FAERS Safety Report 23795530 (Version 1)
Quarter: 2024Q2

REPORT INFORMATION
  Report Type: Spontaneous
  Country: FR (occurrence: FR)
  Receive Date: 20240429
  Receipt Date: 20240429
  Transmission Date: 20240716
  Serious: Yes (Other)
  Sender: FDA-Public Use
  Company Number: None

PATIENT
  Age: 71 Year
  Sex: Male

DRUGS (6)
  1. LORAZEPAM [Suspect]
     Active Substance: LORAZEPAM
     Indication: Product used for unknown indication
     Dosage: AT LEAST 3.75 MG
     Route: 048
     Dates: start: 2016
  2. ACETAMINOPHEN [Suspect]
     Active Substance: ACETAMINOPHEN
     Indication: Product used for unknown indication
     Dosage: UNK, QD (AT LEAST 6 EFFERVESCENT TABS/DAY)
     Route: 048
     Dates: start: 2014
  3. DESLORATADINE [Suspect]
     Active Substance: DESLORATADINE
     Indication: Product used for unknown indication
     Dosage: UNK UNK, QD (1 TAB/DAY)
     Route: 048
     Dates: start: 2020
  4. PREGABALIN [Suspect]
     Active Substance: PREGABALIN
     Indication: Product used for unknown indication
     Dosage: UNK, QD (AT LEAST 100 MG/DAY)
     Route: 048
     Dates: start: 2020
  5. CODEINE [Suspect]
     Active Substance: CODEINE
     Indication: Product used for unknown indication
     Dosage: UNK, QD, AT LEAST 6 EFFERVESCENT TABS/DAY
     Route: 048
     Dates: start: 2014
  6. LORMETAZEPAM [Suspect]
     Active Substance: LORMETAZEPAM
     Indication: Product used for unknown indication
     Dosage: AT LEAST 1 MG
     Route: 048
     Dates: start: 2016

REACTIONS (1)
  - Drug use disorder [Not Recovered/Not Resolved]
